FAERS Safety Report 9263374 (Version 1)
Quarter: 2013Q2

REPORT INFORMATION
  Report Type: Report from Study
  Country: US (occurrence: US)
  Receive Date: 20130430
  Receipt Date: 20130430
  Transmission Date: 20140414
  Serious: No
  Sender: FDA-Public Use
  Company Number: US-ABBOTT-12P-163-0975103-00

PATIENT
  Age: 51 Year
  Sex: Female
  Weight: 54.48 kg

DRUGS (10)
  1. CREON [Suspect]
     Indication: PRODUCT USED FOR UNKNOWN INDICATION
     Dosage: 3 CAP WITH MEALS, 2 WITH SNACKS
     Dates: start: 2010
  2. NORCO [Concomitant]
     Indication: PAIN
  3. PROLIA [Concomitant]
     Indication: INTERVERTEBRAL DISC DEGENERATION
  4. TRAZODONE [Concomitant]
     Indication: INSOMNIA
  5. PROZAC [Concomitant]
     Indication: DEPRESSION
  6. CARAFATE [Concomitant]
     Indication: ULCER
  7. VITAMIN D [Concomitant]
     Indication: SUPPLEMENTATION THERAPY
  8. FISH OIL [Concomitant]
     Indication: SUPPLEMENTATION THERAPY
  9. NEXIUM [Concomitant]
     Indication: ULCER
  10. NOVOLOG [Concomitant]
     Indication: DIABETES MELLITUS

REACTIONS (7)
  - Malaise [Not Recovered/Not Resolved]
  - Fatigue [Not Recovered/Not Resolved]
  - Asthenia [Not Recovered/Not Resolved]
  - Thinking abnormal [Not Recovered/Not Resolved]
  - Drug administration error [Not Recovered/Not Resolved]
  - Rectal haemorrhage [Not Recovered/Not Resolved]
  - Abdominal pain upper [Not Recovered/Not Resolved]
